FAERS Safety Report 4402337-9 (Version None)
Quarter: 2004Q3

REPORT INFORMATION
  Report Type: 
  Country: None (occurrence: None)
  Receive Date: 20040715
  Receipt Date: 20040708
  Transmission Date: 20050211
  Serious: Yes (Hospitalization)
  Sender: FDA-Public Use
  Company Number: STA-AE-04-MTX-299

PATIENT
  Age: 65 Year
  Sex: Female

DRUGS (1)
  1. METHOTREXATE [Suspect]
     Indication: RHEUMATOID ARTHRITIS

REACTIONS (4)
  - ENCEPHALITIS HERPES [None]
  - IMMUNOSUPPRESSION [None]
  - INAPPROPRIATE ANTIDIURETIC HORMONE SECRETION [None]
  - RASH ERYTHEMATOUS [None]
